FAERS Safety Report 22345689 (Version 1)
Quarter: 2023Q2

REPORT INFORMATION
  Report Type: Spontaneous
  Country: US (occurrence: None)
  Receive Date: 20230518
  Receipt Date: 20230518
  Transmission Date: 20230722
  Serious: No
  Sender: FDA-Public Use
  Company Number: None

PATIENT
  Sex: Female

DRUGS (29)
  1. TASIGNA [Suspect]
     Active Substance: NILOTINIB
     Indication: Chronic myeloid leukaemia
     Dosage: FREQUENCY : TWICE A DAY;?
     Route: 048
     Dates: start: 202201, end: 202305
  2. ALENDRONATE SODIUM [Concomitant]
     Active Substance: ALENDRONATE SODIUM
  3. SYMBICORT INHALATION AEROSOL [Concomitant]
  4. BUSPIRONE [Concomitant]
     Active Substance: BUSPIRONE HYDROCHLORIDE
  5. CALCIUM CARBONATE [Concomitant]
     Active Substance: CALCIUM CARBONATE
  6. CHLORTHALIDONE [Concomitant]
     Active Substance: CHLORTHALIDONE
  7. VITAMIN B12 [Concomitant]
     Active Substance: CYANOCOBALAMIN
  8. VITAMIN D3 [Concomitant]
     Active Substance: CHOLECALCIFEROL
  9. DULOXETINE [Concomitant]
     Active Substance: DULOXETINE
  10. FERROUS SULFATE [Concomitant]
     Active Substance: FERROUS SULFATE
  11. FLUTICASONE FUROATE [Concomitant]
     Active Substance: FLUTICASONE FUROATE
  12. GABAPENTIN [Concomitant]
     Active Substance: GABAPENTIN
  13. GLIMEPIRIDE [Concomitant]
     Active Substance: GLIMEPIRIDE
  14. TALTZ SQ SOLUTION [Concomitant]
  15. LISINOPRIL [Concomitant]
     Active Substance: LISINOPRIL
  16. LORATADINE [Concomitant]
     Active Substance: LORATADINE
  17. LORAZEPAM [Concomitant]
     Active Substance: LORAZEPAM
  18. METFORMIN [Concomitant]
     Active Substance: METFORMIN HYDROCHLORIDE
  19. OMEPRAZOLE [Concomitant]
     Active Substance: OMEPRAZOLE
  20. NALOXONE\PENTAZOCINE [Concomitant]
     Active Substance: NALOXONE\PENTAZOCINE
  21. PREDNISONE [Concomitant]
     Active Substance: PREDNISONE
  22. ROSUVASTATIN [Concomitant]
     Active Substance: ROSUVASTATIN
  23. ZOLPIDEM [Concomitant]
     Active Substance: ZOLPIDEM TARTRATE
  24. SPRYCEL [Concomitant]
     Active Substance: DASATINIB
  25. DYCYLOMINE [Concomitant]
  26. ALLOPURINOL [Concomitant]
     Active Substance: ALLOPURINOL
  27. TYNELOL EXTRA STRENGTH [Concomitant]
  28. TRAZODONE [Concomitant]
     Active Substance: TRAZODONE HYDROCHLORIDE
  29. MORPHINE [Concomitant]
     Active Substance: MORPHINE

REACTIONS (1)
  - Drug hypersensitivity [None]
